FAERS Safety Report 5907073-5 (Version None)
Quarter: 2008Q4

REPORT INFORMATION
  Report Type: 
  Country: None (occurrence: None)
  Receive Date: 20081003
  Receipt Date: 20080923
  Transmission Date: 20090506
  Serious: Yes (Hospitalization)
  Sender: FDA-Public Use
  Company Number: DE-WYE-G02221508

PATIENT
  Sex: Female
  Weight: 75 kg

DRUGS (5)
  1. TREVILOR RETARD [Suspect]
     Dosage: OVERDOSE AMOUNT UNKNOWN
     Route: 048
     Dates: start: 20080922, end: 20080922
  2. XIMOVAN [Suspect]
     Dosage: OVERDOSE AMOUNT UNKNOWN
     Route: 048
     Dates: start: 20080922, end: 20080922
  3. NOVALGIN [Suspect]
     Dosage: OVERDOSE AMOUNT UNKNOWN
     Route: 048
     Dates: start: 20080922, end: 20080922
  4. DOMINAL FORTE [Suspect]
     Dosage: OVERDOSE AMOUNT UNKNOWN
     Route: 048
     Dates: start: 20080922, end: 20080922
  5. MIRTAZAPINE [Suspect]
     Dosage: OVERDOSE AMOUNT UNKNOWN
     Route: 048
     Dates: start: 20080922, end: 20080922

REACTIONS (7)
  - ASPIRATION [None]
  - BLOOD POTASSIUM DECREASED [None]
  - HYPOTENSION [None]
  - INTENTIONAL OVERDOSE [None]
  - MYDRIASIS [None]
  - SUICIDE ATTEMPT [None]
  - VOMITING [None]
